FAERS Safety Report 21784683 (Version 1)
Quarter: 2022Q4

REPORT INFORMATION
  Report Type: Spontaneous
  Country: CH (occurrence: CH)
  Receive Date: 20221227
  Receipt Date: 20221227
  Transmission Date: 20230112
  Serious: Yes (Other)
  Sender: FDA-Public Use
  Company Number: CH-ANIPHARMA-2022-CH-000045

PATIENT
  Age: 76 Year
  Sex: Female

DRUGS (7)
  1. CANDESARTAN CILEXETIL [Suspect]
     Active Substance: CANDESARTAN CILEXETIL
     Indication: Hypertension
     Dosage: 8 MG QD
     Route: 048
  2. NEBIVOLOL [Suspect]
     Active Substance: NEBIVOLOL
     Dosage: 5 MG QD
     Route: 048
     Dates: end: 202211
  3. MIRABEGRON [Concomitant]
     Active Substance: MIRABEGRON
     Dosage: 50 MG Q12H
     Route: 048
  4. LEVOTHYROXINE [Concomitant]
     Active Substance: LEVOTHYROXINE
     Dosage: 50 UG QD
     Route: 048
  5. EZETIMIBE [Concomitant]
     Active Substance: EZETIMIBE
     Dosage: 10 MG QD
     Route: 048
  6. VITAMIN D [Concomitant]
     Active Substance: VITAMIN D NOS
     Dosage: 1 DF BIWK
     Route: 048
  7. ESTRIOL [Concomitant]
     Active Substance: ESTRIOL
     Dosage: 1 DF BIWK
     Route: 067

REACTIONS (1)
  - Aphthous ulcer [Unknown]

NARRATIVE: CASE EVENT DATE: 20211101
